FAERS Safety Report 22311210 (Version 9)
Quarter: 2025Q1

REPORT INFORMATION
  Report Type: Spontaneous
  Country: US (occurrence: US)
  Receive Date: 20230511
  Receipt Date: 20250221
  Transmission Date: 20250408
  Serious: Yes (Other)
  Sender: PFIZER
  Company Number: US-PFIZER INC-PV202300080826

PATIENT
  Age: 70 Year
  Sex: Female

DRUGS (4)
  1. IBRANCE [Suspect]
     Active Substance: PALBOCICLIB
     Dates: end: 2023
  2. IBRANCE [Suspect]
     Active Substance: PALBOCICLIB
     Dates: start: 2023
  3. IBRANCE [Suspect]
     Active Substance: PALBOCICLIB
  4. XGEVA [Suspect]
     Active Substance: DENOSUMAB

REACTIONS (8)
  - Actinomycosis [Not Recovered/Not Resolved]
  - Road traffic accident [Unknown]
  - Osteonecrosis [Unknown]
  - Osteonecrosis of jaw [Unknown]
  - Osteomyelitis [Unknown]
  - Neoplasm recurrence [Recovering/Resolving]
  - Computerised tomogram abnormal [Unknown]
  - Infection [Unknown]
